FAERS Safety Report 4557933-5 (Version None)
Quarter: 2005Q1

REPORT INFORMATION
  Report Type: 
  Country: None (occurrence: None)
  Receive Date: 20050121
  Receipt Date: 20040209
  Transmission Date: 20050727
  Serious: Yes (Other)
  Sender: FDA-Public Use
  Company Number: US-BRISTOL-MYERS SQUIBB COMPANY-12502746

PATIENT
  Age: 48 Year
  Sex: Female

DRUGS (6)
  1. SERZONE [Suspect]
     Route: 048
     Dates: end: 20020718
  2. ZYRTEC [Concomitant]
  3. ALBUTEROL [Concomitant]
  4. ATROVENT [Concomitant]
  5. AUGMENTIN '125' [Concomitant]
  6. KLONOPIN [Concomitant]

REACTIONS (7)
  - ANXIETY [None]
  - BACK PAIN [None]
  - LIVER FUNCTION TEST ABNORMAL [None]
  - NAUSEA [None]
  - PRURITUS GENERALISED [None]
  - URINARY INCONTINENCE [None]
  - VOMITING [None]
